FAERS Safety Report 6800772-2 (Version None)
Quarter: 2010Q2

REPORT INFORMATION
  Report Type: 
  Country: None (occurrence: None)
  Receive Date: 20100629
  Receipt Date: 20100623
  Transmission Date: 20101027
  Serious: Yes (Hospitalization)
  Sender: FDA-Public Use
  Company Number: US-BAYER-201017244BCC

PATIENT
  Age: 86 Year
  Sex: Female
  Weight: 66 kg

DRUGS (2)
  1. ALEVE (CAPLET) [Suspect]
     Indication: ABDOMINAL PAIN
     Dosage: TOTAL DAILY DOSE: 660 MG  UNIT DOSE: 220 MG
     Route: 048
  2. HYDROCHLOROTHIAZIDE [Concomitant]
     Route: 065

REACTIONS (2)
  - MOUTH HAEMORRHAGE [None]
  - RECTAL HAEMORRHAGE [None]
